FAERS Safety Report 14562473 (Version 3)
Quarter: 2018Q2

REPORT INFORMATION
  Report Type: Spontaneous
  Country: AU (occurrence: AU)
  Receive Date: 20180222
  Receipt Date: 20180426
  Transmission Date: 20180711
  Serious: Yes (Other)
  Sender: FDA-Public Use
  Company Number: AU-PFIZER INC-2018022606

PATIENT
  Age: 29 Year
  Sex: Male
  Weight: 65 kg

DRUGS (2)
  1. ZOLOFT [Suspect]
     Active Substance: SERTRALINE HYDROCHLORIDE
     Indication: DEPRESSION
  2. ZOLOFT [Suspect]
     Active Substance: SERTRALINE HYDROCHLORIDE
     Indication: ANXIETY
     Dosage: 100 MG, DAILY
     Route: 048
     Dates: start: 20151014

REACTIONS (2)
  - Diabetes mellitus [Recovering/Resolving]
  - Hyperlipidaemia [Recovering/Resolving]

NARRATIVE: CASE EVENT DATE: 20180117
